FAERS Safety Report 7952190-1 (Version None)
Quarter: 2011Q4

REPORT INFORMATION
  Report Type: 
  Country: None (occurrence: None)
  Receive Date: 20111201
  Receipt Date: 20111130
  Transmission Date: 20120403
  Serious: Yes (Death)
  Sender: FDA-Public Use
  Company Number: PHEH2011US010494

PATIENT
  Sex: Female

DRUGS (1)
  1. TASIGNA [Suspect]
     Indication: LYMPHOCYTOSIS
     Dosage: 2 CAPSULES TWICE DAILY
     Route: 048
     Dates: start: 20111115

REACTIONS (1)
  - DEATH [None]
